FAERS Safety Report 4960850-X (Version None)
Quarter: 2006Q1

REPORT INFORMATION
  Report Type: 
  Country: None (occurrence: None)
  Receive Date: 20060329
  Receipt Date: 20060316
  Transmission Date: 20060701
  Serious: Yes (Death)
  Sender: FDA-Public Use
  Company Number: 2006037855

PATIENT
  Age: 73 Year
  Sex: Male

DRUGS (3)
  1. DOXORUBICIN (DOXORUBICIN) [Suspect]
     Indication: NON-HODGKIN'S LYMPHOMA
     Dosage: INTRAVENOUS
     Route: 042
     Dates: start: 20040401, end: 20051017
  2. ENDOXAN (CYCLOPHOSPHAMIDE) [Concomitant]
  3. ONCOVIN [Concomitant]

REACTIONS (1)
  - ATRIAL FIBRILLATION [None]
